FAERS Safety Report 19088875 (Version 1)
Quarter: 2021Q2

REPORT INFORMATION
  Report Type: Spontaneous
  Country: GB (occurrence: GB)
  Receive Date: 20210403
  Receipt Date: 20210403
  Transmission Date: 20210717
  Serious: Yes (Other)
  Sender: FDA-Public Use
  Company Number: GB-AUROBINDO-AUR-APL-2021-013262

PATIENT
  Age: 48 Year
  Sex: Female
  Weight: 63.5 kg

DRUGS (4)
  1. METRONIDAZOLE. [Suspect]
     Active Substance: METRONIDAZOLE
     Indication: TOOTH ABSCESS
     Dosage: 400 MILLIGRAM
     Route: 048
     Dates: start: 20210301, end: 20210308
  2. MAROL [Concomitant]
     Active Substance: TRAMADOL HYDROCHLORIDE
     Indication: PRODUCT USED FOR UNKNOWN INDICATION
     Dosage: UNK (PROLONGED RELEASE   )
     Route: 065
  3. PFIZER?BIONTECH COVID?19 VACCINE [Interacting]
     Active Substance: TOZINAMERAN
     Indication: COVID-19 IMMUNISATION
     Dosage: UNK (UNKNOWN DOSE OF VACCINATION)
     Route: 048
     Dates: start: 202103
  4. VENLAFAXINE HYDROCHLORIDE. [Concomitant]
     Active Substance: VENLAFAXINE HYDROCHLORIDE
     Indication: PRODUCT USED FOR UNKNOWN INDICATION
     Dosage: UNK
     Route: 065
     Dates: start: 20190501

REACTIONS (6)
  - Drug interaction [Unknown]
  - Pruritus [Recovered/Resolved with Sequelae]
  - Pain [Unknown]
  - Rash papular [Recovered/Resolved with Sequelae]
  - Blister [Recovered/Resolved with Sequelae]
  - Skin discolouration [Unknown]

NARRATIVE: CASE EVENT DATE: 20210305
